FAERS Safety Report 5327702-7 (Version None)
Quarter: 2007Q2

REPORT INFORMATION
  Report Type: 
  Country: None (occurrence: None)
  Receive Date: 20070517
  Receipt Date: 20070507
  Transmission Date: 20071010
  Serious: Yes (Hospitalization)
  Sender: FDA-Public Use
  Company Number: JP-MERCK-0703USA05490

PATIENT
  Age: 56 Year
  Sex: Female
  Weight: 61 kg

DRUGS (5)
  1. SINGULAIR [Suspect]
     Indication: ASTHMA
     Route: 048
     Dates: start: 20070224, end: 20070322
  2. QVAR 40 [Concomitant]
     Indication: ASTHMA
     Dates: start: 20070224, end: 20070313
  3. QVAR 40 [Concomitant]
     Dates: start: 20070314
  4. CELESTONE [Concomitant]
     Indication: URTICARIA
     Route: 048
     Dates: start: 20070323, end: 20070329
  5. ALLEGRA [Concomitant]
     Indication: URTICARIA
     Route: 048
     Dates: start: 20070323, end: 20070329

REACTIONS (1)
  - ANAPHYLACTOID REACTION [None]
